FAERS Safety Report 7163924-0 (Version None)
Quarter: 2010Q4

REPORT INFORMATION
  Report Type: 
  Country: None (occurrence: None)
  Receive Date: 20101202
  Receipt Date: 20101122
  Transmission Date: 20110411
  Serious: Yes (Hospitalization, Other)
  Sender: FDA-Public Use
  Company Number: 020793

PATIENT
  Age: 38 Year
  Sex: Male
  Weight: 77 kg

DRUGS (4)
  1. LACOSAMIDE [Suspect]
     Indication: COMPLEX PARTIAL SEIZURES
     Dosage: 400 MG
     Dates: start: 20091214, end: 20091215
  2. KEPPRA [Suspect]
     Dosage: (2000 MG ORAL) (3000 MG ORAL)
     Route: 048
     Dates: start: 20080108
  3. KEPPRA [Suspect]
     Dosage: (2000 MG ORAL) (3000 MG ORAL)
     Route: 048
     Dates: start: 20090108
  4. DEPAKOTE [Concomitant]

REACTIONS (3)
  - CONDITION AGGRAVATED [None]
  - CONVULSION [None]
  - DRUG INEFFECTIVE [None]
